FAERS Safety Report 22369201 (Version 1)
Quarter: 2023Q2

REPORT INFORMATION
  Report Type: Spontaneous
  Country: US (occurrence: US)
  Receive Date: 20230525
  Receipt Date: 20230525
  Transmission Date: 20230721
  Serious: Yes (Other)
  Sender: FDA-Public Use
  Company Number: US-KVK-TECH, INC-20230500084

PATIENT
  Age: 40 Year
  Sex: Female

DRUGS (2)
  1. PROMETHAZINE HYDROCHLORIDE [Suspect]
     Active Substance: PROMETHAZINE HYDROCHLORIDE
     Indication: Nausea
     Dosage: 12.5 MILLIGRAM, PRN (EVERY 6 HOURS AS NEEDED)
     Route: 042
  2. DIHYDROERGOTAMINE [Suspect]
     Active Substance: DIHYDROERGOTAMINE
     Indication: Status migrainosus
     Dosage: UNK, UNKNOWN
     Route: 042

REACTIONS (1)
  - Peripheral artery occlusion [Recovered/Resolved]
